FAERS Safety Report 6309148-8 (Version None)
Quarter: 2009Q3

REPORT INFORMATION
  Report Type: 
  Country: None (occurrence: None)
  Receive Date: 20090814
  Receipt Date: 20090525
  Transmission Date: 20100115
  Serious: No
  Sender: FDA-Public Use
  Company Number: A0782784A

PATIENT
  Age: 74 Year
  Sex: Male

DRUGS (7)
  1. COREG CR [Suspect]
     Dosage: 20MG PER DAY
     Route: 048
     Dates: start: 20090429
  2. PLAVIX [Concomitant]
  3. DIAVAN [Concomitant]
  4. VITAMINS [Concomitant]
  5. MILK OF MAGNESIUM [Concomitant]
  6. ASPIRIN [Concomitant]
  7. CALCIUM [Concomitant]

REACTIONS (1)
  - CONDITION AGGRAVATED [None]
